FAERS Safety Report 24616981 (Version 2)
Quarter: 2024Q4

REPORT INFORMATION
  Report Type: Spontaneous
  Country: PL (occurrence: PL)
  Receive Date: 20241114
  Receipt Date: 20241126
  Transmission Date: 20250115
  Serious: Yes (Other)
  Sender: ABBVIE
  Company Number: PL-PFIZER INC-PV202400140961

PATIENT
  Age: 35 Year
  Sex: Male

DRUGS (1)
  1. ADALIMUMAB [Suspect]
     Active Substance: ADALIMUMAB
     Indication: Psoriasis
     Dosage: WEEK 12 OF TREATMENT
     Route: 058

REACTIONS (2)
  - Glaucomatocyclitic crises [Unknown]
  - Meningitis aseptic [Recovered/Resolved]
